FAERS Safety Report 21443509 (Version 2)
Quarter: 2022Q4

REPORT INFORMATION
  Report Type: Spontaneous
  Country: HR (occurrence: HR)
  Receive Date: 20221012
  Receipt Date: 20221108
  Transmission Date: 20230112
  Serious: Yes (Hospitalization, Other)
  Sender: FDA-Public Use
  Company Number: HR-BAYER-2022A138995

PATIENT
  Sex: Male

DRUGS (20)
  1. RIVAROXABAN [Suspect]
     Active Substance: RIVAROXABAN
     Indication: Atrial fibrillation
     Dosage: 2.5 MG
     Route: 048
     Dates: start: 202109, end: 202208
  2. ASPIRIN [Concomitant]
     Active Substance: ASPIRIN
     Dosage: UNK
     Dates: start: 2007, end: 202208
  3. TELMISARTAN [Concomitant]
     Active Substance: TELMISARTAN
     Dosage: 40 MG, QD
  4. BISOPROLOL [Concomitant]
     Active Substance: BISOPROLOL
     Dosage: 5 MG, QD
  5. FUROSEMIDE [Concomitant]
     Active Substance: FUROSEMIDE
  6. ATORVASTATIN [Concomitant]
     Active Substance: ATORVASTATIN
  7. MOXONIDINE [Concomitant]
     Active Substance: MOXONIDINE
  8. TAMSULOSIN [Concomitant]
     Active Substance: TAMSULOSIN
     Dosage: 0.5 MG
  9. MAPRAZAX [Concomitant]
  10. OLANZAPINE [Concomitant]
     Active Substance: OLANZAPINE
  11. MIRTAZAPINE [Concomitant]
     Active Substance: MIRTAZAPINE
  12. FLURAZEPAM [Concomitant]
     Active Substance: FLURAZEPAM HYDROCHLORIDE
  13. RABEPRAZOLE [Concomitant]
     Active Substance: RABEPRAZOLE
     Dosage: 20 MG, QD
  14. INSULIN DEGLUDEC [Concomitant]
     Active Substance: INSULIN DEGLUDEC
  15. INSULIN NOS [Concomitant]
     Active Substance: INSULIN NOS
  16. FOLIC ACID [Concomitant]
     Active Substance: FOLIC ACID
  17. CALCITRIOL [Concomitant]
     Active Substance: CALCITRIOL
  18. NEPRO HP [Concomitant]
  19. GLUCERNA [Concomitant]
     Active Substance: AMINO ACIDS\DEXTROSE\ELECTROLYTES NOS\SOYBEAN OIL\VITAMINS
  20. CLOPIDOGREL [Concomitant]
     Active Substance: CLOPIDOGREL BISULFATE
     Dosage: UNK

REACTIONS (10)
  - Urinary retention [Unknown]
  - Haematochezia [Unknown]
  - Haematuria [Unknown]
  - Urinary tract infection [Recovered/Resolved]
  - Haematuria [Unknown]
  - Hypotension [Recovered/Resolved]
  - Atrial fibrillation [Unknown]
  - Prostatitis [Unknown]
  - Benign prostatic hyperplasia [Unknown]
  - Mineral supplementation [Unknown]

NARRATIVE: CASE EVENT DATE: 20220401
